FAERS Safety Report 4412254-6 (Version None)
Quarter: 2004Q3

REPORT INFORMATION
  Report Type: 
  Country: None (occurrence: None)
  Receive Date: 20040727
  Receipt Date: 20040719
  Transmission Date: 20050211
  Serious: Yes (Death)
  Sender: FDA-Public Use
  Company Number: US-JNJFOC-20040704990

PATIENT
  Age: 70 Year
  Sex: Female
  Weight: 42.6381 kg

DRUGS (5)
  1. DOXIL (DOXORUBICIN HYDROCHLORIDE) LIPOSOME INJECTION [Suspect]
     Indication: B-CELL LYMPHOMA
     Dosage: INTRAVENOUS
     Route: 042
     Dates: start: 20040505, end: 20040708
  2. RITUXAN [Suspect]
     Indication: B-CELL LYMPHOMA
     Dosage: INTRAVENOUS
     Route: 042
     Dates: start: 20040607, end: 20040708
  3. PREVACID [Concomitant]
  4. TYLENOL [Concomitant]
  5. DIFLUCAN [Concomitant]

REACTIONS (1)
  - GASTROINTESTINAL HAEMORRHAGE [None]
